FAERS Safety Report 9790120 (Version 1)
Quarter: 2013Q4

REPORT INFORMATION
  Report Type: Spontaneous
  Country: US (occurrence: None)
  Receive Date: 20131230
  Receipt Date: 20131230
  Transmission Date: 20140711
  Serious: Yes (Hospitalization, Disabling)
  Sender: FDA-Public Use
  Company Number: None

PATIENT
  Age: 62 Year
  Sex: Female
  Weight: 73.03 kg

DRUGS (3)
  1. SUPREP [Suspect]
     Dosage: 1 KIT BID ORAL
  2. KOMBIGLYZE [Concomitant]
  3. LISINOPRIL [Concomitant]

REACTIONS (3)
  - Post procedural diarrhoea [None]
  - Pancreatitis [None]
  - Abdominal pain [None]
